FAERS Safety Report 23948337 (Version 1)
Quarter: 2024Q2

REPORT INFORMATION
  Report Type: Spontaneous
  Country: US (occurrence: US)
  Receive Date: 20240607
  Receipt Date: 20240607
  Transmission Date: 20240716
  Serious: No
  Sender: FDA-Public Use
  Company Number: US-CADILA HEALTHCARE LIMITED-US-ZYDUS-106798

PATIENT

DRUGS (2)
  1. ENOXAPARIN [Suspect]
     Active Substance: ENOXAPARIN
     Indication: Hypercoagulation
     Dosage: 100 MILLIGRAM, EVERY 12 HOURS
     Route: 058
     Dates: start: 202210
  2. ENOXAPARIN [Suspect]
     Active Substance: ENOXAPARIN
     Indication: Off label use

REACTIONS (4)
  - Injection site pain [Unknown]
  - Product use in unapproved indication [Not Recovered/Not Resolved]
  - Needle issue [Unknown]
  - Syringe issue [Unknown]

NARRATIVE: CASE EVENT DATE: 20221001
